FAERS Safety Report 4470732-8 (Version None)
Quarter: 2004Q4

REPORT INFORMATION
  Report Type: 
  Country: None (occurrence: None)
  Receive Date: 20041006
  Receipt Date: 20041006
  Transmission Date: 20050328
  Serious: Yes (Other)
  Sender: FDA-Public Use
  Company Number: None

PATIENT
  Age: 43 Year
  Sex: Female
  Weight: 83.9154 kg

DRUGS (2)
  1. OXYCONTIN [Suspect]
     Indication: BACK PAIN
     Dosage: SEE IMAGE
  2. OXYCONTIN [Suspect]
     Indication: PAIN
     Dosage: SEE IMAGE

REACTIONS (1)
  - RASH PRURITIC [None]
